FAERS Safety Report 15346880 (Version 1)
Quarter: 2018Q3

REPORT INFORMATION
  Report Type: Spontaneous
  Country: US (occurrence: US)
  Receive Date: 20180828
  Receipt Date: 20180828
  Transmission Date: 20181010
  Serious: Yes (Life-Threatening, Hospitalization)
  Sender: FDA-Public Use
  Company Number: None

PATIENT
  Age: 70 Year
  Sex: Female
  Weight: 80 kg

DRUGS (2)
  1. METHOTREXATE. [Suspect]
     Active Substance: METHOTREXATE
     Indication: RHEUMATOID ARTHRITIS
     Dosage: OTHER FREQUENCY:ONCE EVERY 7 DAYS;?
     Route: 030
     Dates: start: 20180125, end: 20180819
  2. XELJANZ [Suspect]
     Active Substance: TOFACITINIB CITRATE
     Indication: RHEUMATOID ARTHRITIS
     Route: 048
     Dates: start: 20160121, end: 20180819

REACTIONS (3)
  - Fungal test positive [None]
  - Cryptococcosis [None]
  - Opportunistic infection [None]

NARRATIVE: CASE EVENT DATE: 20180819
